FAERS Safety Report 6102835-6 (Version None)
Quarter: 2009Q1

REPORT INFORMATION
  Report Type: 
  Country: None (occurrence: None)
  Receive Date: 20090304
  Receipt Date: 20090224
  Transmission Date: 20090719
  Serious: Yes (Hospitalization)
  Sender: FDA-Public Use
  Company Number: JP-GILEAD-2009-0020598

PATIENT
  Sex: Male
  Weight: 57 kg

DRUGS (5)
  1. TRUVADA [Suspect]
     Indication: HIV INFECTION
     Route: 048
     Dates: start: 20050524
  2. STOCRIN [Suspect]
     Indication: HIV INFECTION
     Route: 048
     Dates: start: 20050425
  3. PEG-INTRON [Concomitant]
     Dates: start: 20060401, end: 20060429
  4. MINOFIT [Concomitant]
     Dates: start: 20070418
  5. KOGENATE [Concomitant]
     Dates: start: 20070401

REACTIONS (1)
  - ARTHRITIS BACTERIAL [None]
